FAERS Safety Report 21562234 (Version 1)
Quarter: 2022Q4

REPORT INFORMATION
  Report Type: Spontaneous
  Country: US (occurrence: None)
  Receive Date: 20221105
  Receipt Date: 20221105
  Transmission Date: 20230113
  Serious: No
  Sender: FDA-Public Use
  Company Number: None

PATIENT
  Sex: Male
  Weight: 91.4 kg

DRUGS (2)
  1. CARBOPLATIN [Suspect]
     Active Substance: CARBOPLATIN
     Dates: end: 20221019
  2. TAXOL [Suspect]
     Active Substance: PACLITAXEL
     Dates: end: 20221019

REACTIONS (1)
  - Lymphopenia [None]

NARRATIVE: CASE EVENT DATE: 20221025
